FAERS Safety Report 24941038 (Version 1)
Quarter: 2025Q1

REPORT INFORMATION
  Report Type: Spontaneous
  Country: US (occurrence: US)
  Receive Date: 20250207
  Receipt Date: 20250207
  Transmission Date: 20250409
  Serious: Yes (Other)
  Sender: CHEPLAPHARM
  Company Number: US-CHEPLA-2025001510

PATIENT
  Sex: Female

DRUGS (3)
  1. CLONAZEPAM [Suspect]
     Active Substance: CLONAZEPAM
     Indication: Vertigo
  2. ELIQUIS [Concomitant]
     Active Substance: APIXABAN
  3. SOTALOL [Concomitant]
     Active Substance: SOTALOL

REACTIONS (2)
  - Dementia [Unknown]
  - Product use in unapproved indication [Unknown]
